FAERS Safety Report 19165578 (Version 1)
Quarter: 2021Q2

REPORT INFORMATION
  Report Type: Report from Study
  Country: US (occurrence: US)
  Receive Date: 20210421
  Receipt Date: 20210421
  Transmission Date: 20210717
  Serious: Yes (Other)
  Sender: FDA-Public Use
  Company Number: US-BIOGEN-2021BI01000406

PATIENT
  Sex: Female
  Weight: 47.67 kg

DRUGS (1)
  1. TECFIDERA [Suspect]
     Active Substance: DIMETHYL FUMARATE
     Indication: MULTIPLE SCLEROSIS
     Route: 048
     Dates: start: 20171227

REACTIONS (4)
  - Visual impairment [Unknown]
  - Nystagmus [Unknown]
  - Migraine [Unknown]
  - Weight decreased [Unknown]
